FAERS Safety Report 16478528 (Version 1)
Quarter: 2019Q2

REPORT INFORMATION
  Report Type: Spontaneous
  Country: US (occurrence: US)
  Receive Date: 20190626
  Receipt Date: 20190626
  Transmission Date: 20190711
  Serious: No
  Sender: FDA-Public Use
  Company Number: US-TEVA-2019-US-1058658

PATIENT
  Sex: Female

DRUGS (1)
  1. PREDNISONE. [Suspect]
     Active Substance: PREDNISONE
     Indication: PERIPHERAL SWELLING
     Dates: start: 20190523

REACTIONS (5)
  - Feeling abnormal [Unknown]
  - Sinusitis [Unknown]
  - Abdominal discomfort [Unknown]
  - Product use in unapproved indication [Recovered/Resolved with Sequelae]
  - Abdominal distension [Unknown]

NARRATIVE: CASE EVENT DATE: 20190523
